FAERS Safety Report 9232633 (Version 1)
Quarter: 2013Q2

REPORT INFORMATION
  Report Type: Spontaneous
  Country: US (occurrence: None)
  Receive Date: 20130415
  Receipt Date: 20130415
  Transmission Date: 20140414
  Serious: No
  Sender: FDA-Public Use
  Company Number: None

PATIENT
  Age: 67 Year
  Sex: Female

DRUGS (1)
  1. LETAZOLE [Suspect]
     Indication: BREAST CANCER
     Route: 048
     Dates: start: 20100702, end: 201303

REACTIONS (5)
  - Flushing [None]
  - Pruritus [None]
  - Skin tightness [None]
  - Muscle tightness [None]
  - Dysgeusia [None]
